FAERS Safety Report 23085133 (Version 1)
Quarter: 2023Q4

REPORT INFORMATION
  Report Type: Spontaneous
  Country: GB (occurrence: GB)
  Receive Date: 20231019
  Receipt Date: 20231019
  Transmission Date: 20240109
  Serious: Yes (Other)
  Sender: FDA-Public Use
  Company Number: GB-JNJFOC-20231036576

PATIENT
  Age: 80 Year
  Sex: Male

DRUGS (2)
  1. IMBRUVICA [Suspect]
     Active Substance: IBRUTINIB
     Indication: Chronic lymphocytic leukaemia
     Route: 048
  2. VENETOCLAX [Suspect]
     Active Substance: VENETOCLAX
     Indication: Chronic lymphocytic leukaemia
     Route: 048

REACTIONS (7)
  - Pneumonia [Unknown]
  - Arthralgia [Unknown]
  - Neutropenia [Recovered/Resolved]
  - Lymphocytosis [Unknown]
  - Atrial fibrillation [Unknown]
  - COVID-19 [Unknown]
  - Contusion [Unknown]
